FAERS Safety Report 25438939 (Version 1)
Quarter: 2025Q2

REPORT INFORMATION
  Report Type: Report from Study
  Country: AE (occurrence: AE)
  Receive Date: 20250616
  Receipt Date: 20250616
  Transmission Date: 20250716
  Serious: Yes (Other)
  Sender: ROCHE
  Company Number: AE-ROCHE-10000308735

PATIENT
  Sex: Female

DRUGS (1)
  1. OCREVUS [Suspect]
     Active Substance: OCRELIZUMAB
     Indication: Product used for unknown indication
     Route: 065

REACTIONS (5)
  - Demyelination [Unknown]
  - Spinal stenosis [Unknown]
  - Gait disturbance [Unknown]
  - Intervertebral disc protrusion [Unknown]
  - Spinal cord compression [Unknown]
